FAERS Safety Report 10836037 (Version 1)
Quarter: 2015Q1

REPORT INFORMATION
  Report Type: Report from Study
  Country: DE (occurrence: DE)
  Receive Date: 20150219
  Receipt Date: 20150219
  Transmission Date: 20150721
  Serious: Yes (Death)
  Sender: FDA-Public Use
  Company Number: DE-ACTELION-A-NJ2015-113038

PATIENT
  Age: 56 Year
  Sex: Female

DRUGS (1)
  1. VENTAVIS [Suspect]
     Active Substance: ILOPROST
     Indication: PULMONARY ARTERIAL HYPERTENSION
     Dosage: 2.5 MCG, 6X/DAY
     Route: 055
     Dates: start: 20140904

REACTIONS (1)
  - Death [Fatal]

NARRATIVE: CASE EVENT DATE: 20150206
